FAERS Safety Report 9319489 (Version 3)
Quarter: 2015Q1

REPORT INFORMATION
  Report Type: Spontaneous
  Country: US (occurrence: US)
  Receive Date: 20130530
  Receipt Date: 20150210
  Transmission Date: 20150721
  Serious: No
  Sender: FDA-Public Use
  Company Number: US-GLAXOSMITHKLINE-A0991346A

PATIENT

DRUGS (6)
  1. FLOLAN [Suspect]
     Active Substance: EPOPROSTENOL SODIUM
     Dates: start: 20040930
  2. FLOLAN [Suspect]
     Active Substance: EPOPROSTENOL SODIUM
     Indication: PULMONARY ARTERIAL HYPERTENSION
     Dosage: 38.5 NG/KG/MIN, CONCENTRATION  60,000 NG/ML, VIAL STRENGTH 1.5 MG37.5 NG/KG/MIN45.1 NG/KG/MIN, [...]
     Route: 042
     Dates: start: 20040930
  3. COUMADIN [Concomitant]
     Active Substance: WARFARIN SODIUM
  4. FLOLAN [Suspect]
     Active Substance: EPOPROSTENOL SODIUM
     Dates: start: 20040930
  5. FLOLAN [Suspect]
     Active Substance: EPOPROSTENOL SODIUM
     Dates: start: 20040930
  6. REVATIO [Concomitant]
     Active Substance: SILDENAFIL CITRATE

REACTIONS (8)
  - Feeling abnormal [Unknown]
  - Dizziness [Unknown]
  - Hypotension [Unknown]
  - Feeling hot [Unknown]
  - Device malfunction [Unknown]
  - Exercise tolerance decreased [Unknown]
  - Dyspnoea [Unknown]
  - Sinusitis [Unknown]
